FAERS Safety Report 11693338 (Version 1)
Quarter: 2015Q4

REPORT INFORMATION
  Report Type: Spontaneous
  Country: US (occurrence: None)
  Receive Date: 20151102
  Receipt Date: 20151102
  Transmission Date: 20160304
  Serious: Yes (Other)
  Sender: FDA-Public Use
  Company Number: None

PATIENT
  Age: 41 Year

DRUGS (15)
  1. SELENIUM [Concomitant]
     Active Substance: SELENIUM
  2. CUT C [Concomitant]
  3. MAG [Concomitant]
  4. BIOTIN [Concomitant]
     Active Substance: BIOTIN
  5. CYMBALTA [Concomitant]
     Active Substance: DULOXETINE HYDROCHLORIDE
  6. ALLEGRA [Concomitant]
     Active Substance: FEXOFENADINE HYDROCHLORIDE
  7. MULTI VITAMIN [Concomitant]
     Active Substance: VITAMINS
  8. CYMBALTA [Suspect]
     Active Substance: DULOXETINE HYDROCHLORIDE
     Indication: PRODUCT USED FOR UNKNOWN INDICATION
     Dosage: 1, ONCE DAILY, TAKEN BY MOUTH
     Route: 048
     Dates: start: 20150201, end: 20150228
  9. VITBD [Concomitant]
  10. ZINC [Concomitant]
     Active Substance: ZINC\ZINC CHLORIDE
  11. VICIODIN [Concomitant]
  12. PRILOSEC [Concomitant]
     Active Substance: OMEPRAZOLE MAGNESIUM
  13. SYNTHROID [Concomitant]
     Active Substance: LEVOTHYROXINE SODIUM
  14. PREMARIN [Concomitant]
     Active Substance: ESTROGENS, CONJUGATED
  15. CALCIUM [Concomitant]
     Active Substance: CALCIUM

REACTIONS (8)
  - Spinal pain [None]
  - Impaired work ability [None]
  - Impaired driving ability [None]
  - Paraesthesia [None]
  - Suicidal ideation [None]
  - Hypersomnia [None]
  - Loss of employment [None]
  - Withdrawal syndrome [None]

NARRATIVE: CASE EVENT DATE: 20150201
